FAERS Safety Report 4544646-9 (Version None)
Quarter: 2004Q4

REPORT INFORMATION
  Report Type: 
  Country: None (occurrence: None)
  Receive Date: 20041230
  Receipt Date: 20041214
  Transmission Date: 20050328
  Serious: Yes (Hospitalization)
  Sender: FDA-Public Use
  Company Number: 2004AC00855

PATIENT
  Age: 79 Year
  Sex: Male

DRUGS (16)
  1. ROSUVASTATIN CODE NOT BROKEN [Suspect]
     Indication: RENAL FAILURE CHRONIC
     Dates: start: 20030623
  2. TENORMIN [Suspect]
     Indication: HYPERTENSION
     Dosage: HALF A TABLET GIVEN EVERY OTHER DAY
     Dates: start: 20020206
  3. ISOTEN MITIS [Suspect]
     Indication: HYPOTENSION
     Dates: start: 20040816
  4. FERRON [Concomitant]
  5. POLYVITAMIN [Concomitant]
  6. LASIX [Concomitant]
  7. RENAGEL [Concomitant]
  8. ENFEUX [Concomitant]
  9. ACETYLSALICYLIC ACID SRT [Concomitant]
  10. CALCIUM CARBONATE [Concomitant]
  11. FOLIC ACID [Concomitant]
  12. EPOGEN [Concomitant]
  13. CITALOPRAM [Concomitant]
  14. RANITIDINE [Concomitant]
  15. ALLOPURINOL [Concomitant]
  16. SODIUM BICARBONATE [Concomitant]

REACTIONS (4)
  - ATRIOVENTRICULAR BLOCK COMPLETE [None]
  - BRADYCARDIA [None]
  - HYPOTENSION [None]
  - MALAISE [None]
